FAERS Safety Report 23268053 (Version 2)
Quarter: 2023Q4

REPORT INFORMATION
  Report Type: Spontaneous
  Country: US (occurrence: None)
  Receive Date: 20231206
  Receipt Date: 20231220
  Transmission Date: 20240109
  Serious: Yes (Life-Threatening)
  Sender: FDA-Public Use
  Company Number: 2023A270524

PATIENT
  Age: 67 Year
  Sex: Female

DRUGS (1)
  1. SYMBICORT [Suspect]
     Active Substance: BUDESONIDE\FORMOTEROL FUMARATE DIHYDRATE
     Dosage: 160/4.5 UG, 2 PUFFS IN MORNING AND 2 PUFFS AT NIGHT
     Route: 055
     Dates: start: 202309

REACTIONS (4)
  - Oxygen saturation decreased [Unknown]
  - Drug dose omission by device [Unknown]
  - Device use issue [Unknown]
  - Drug delivery system malfunction [Unknown]

NARRATIVE: CASE EVENT DATE: 20230101
